FAERS Safety Report 10469963 (Version 1)
Quarter: 2014Q3

REPORT INFORMATION
  Report Type: Spontaneous
  Country: US (occurrence: None)
  Receive Date: 20140922
  Receipt Date: 20140922
  Transmission Date: 20150326
  Serious: Yes (Life-Threatening, Hospitalization)
  Sender: FDA-Public Use
  Company Number: None

PATIENT
  Age: 19 Year
  Sex: Female
  Weight: 63.5 kg

DRUGS (1)
  1. DEPO-PROVERA [Suspect]
     Active Substance: MEDROXYPROGESTERONE ACETATE
     Indication: MENSTRUATION IRREGULAR
     Dosage: EVRY 3 MONTHS INTO THE MUSCLE
     Dates: start: 20140917, end: 20140917

REACTIONS (4)
  - Anaphylactic reaction [None]
  - Chest discomfort [None]
  - Urticaria [None]
  - Swollen tongue [None]

NARRATIVE: CASE EVENT DATE: 20140917
